FAERS Safety Report 21083170 (Version 1)
Quarter: 2022Q3

REPORT INFORMATION
  Report Type: Spontaneous
  Country: US (occurrence: None)
  Receive Date: 20220714
  Receipt Date: 20220714
  Transmission Date: 20221027
  Serious: No
  Sender: FDA-Public Use
  Company Number: None

PATIENT
  Sex: Female

DRUGS (1)
  1. GAMMAGARD LIQUID [Suspect]
     Active Substance: HUMAN IMMUNOGLOBULIN G
     Indication: Multiple sclerosis
     Dosage: 40GM EVERY 3 WEEKS IV?
     Route: 042
     Dates: start: 20220617

REACTIONS (4)
  - Vomiting [None]
  - Therapy cessation [None]
  - Fatigue [None]
  - Infusion related reaction [None]
